FAERS Safety Report 24869284 (Version 4)
Quarter: 2025Q1

REPORT INFORMATION
  Report Type: Spontaneous
  Country: ES (occurrence: ES)
  Receive Date: 20250121
  Receipt Date: 20250228
  Transmission Date: 20250409
  Serious: Yes (Hospitalization, Other)
  Sender: MYLAN
  Company Number: ES-SANDOZ-SDZ2025ES000852

PATIENT
  Age: 71 Year
  Sex: Male
  Weight: 90 kg

DRUGS (22)
  1. CYCLOSPORINE [Interacting]
     Active Substance: CYCLOSPORINE
     Indication: Pyoderma gangrenosum
     Dosage: 150 MILLIGRAM, QD
  2. CYCLOSPORINE [Interacting]
     Active Substance: CYCLOSPORINE
     Dosage: 150 MILLIGRAM, BID (Q12H)
  3. CYCLOSPORINE [Interacting]
     Active Substance: CYCLOSPORINE
  4. CYCLOSPORINE [Interacting]
     Active Substance: CYCLOSPORINE
     Dosage: 100 MILLIGRAM, QD (IN THE MORNING)
  5. CYCLOSPORINE [Interacting]
     Active Substance: CYCLOSPORINE
     Dosage: 50 MILLIGRAM, QD (AT NIGHT)
  6. ATORVASTATIN\EZETIMIBE [Interacting]
     Active Substance: ATORVASTATIN\EZETIMIBE
     Indication: Hypertensive heart disease
     Dosage: 1 DOSAGE FORM, QD (40 MG-10 MG, FOR THE LAST 5 YEARS)
  7. ATORVASTATIN\EZETIMIBE [Interacting]
     Active Substance: ATORVASTATIN\EZETIMIBE
     Dosage: 40 MILLIGRAM, QD (Q24H)
  8. VERAPAMIL [Interacting]
     Active Substance: VERAPAMIL HYDROCHLORIDE
     Indication: Hypertensive heart disease
     Dosage: 240 MILLIGRAM, QD (FOR THE LAST 5 YEARS)
  9. PREDNISONE [Concomitant]
     Active Substance: PREDNISONE
     Indication: Product used for unknown indication
     Dosage: 20 MILLIGRAM, QD
  10. METFORMIN [Concomitant]
     Active Substance: METFORMIN HYDROCHLORIDE
     Indication: Type 1 diabetes mellitus
     Dosage: 1000 MILLIGRAM, BID
  11. SEMAGLUTIDE [Concomitant]
     Active Substance: SEMAGLUTIDE
     Indication: Type 1 diabetes mellitus
     Dosage: 1 MILLIGRAM, QW
  12. INSULIN LISPRO [Concomitant]
     Active Substance: INSULIN LISPRO
     Indication: Type 1 diabetes mellitus
  13. INSULIN ASPART [Concomitant]
     Active Substance: INSULIN ASPART
     Indication: Type 1 diabetes mellitus
  14. APIXABAN [Concomitant]
     Active Substance: APIXABAN
     Indication: Product used for unknown indication
     Dosage: 5 MILLIGRAM, BID
  15. HYDROCHLOROTHIAZIDE\OLMESARTAN MEDOXOMIL [Concomitant]
     Active Substance: HYDROCHLOROTHIAZIDE\OLMESARTAN MEDOXOMIL
     Indication: Essential hypertension
     Dosage: 1 DOSAGE FORM, QD (40 MG-25 MG)
  16. HYDROCHLOROTHIAZIDE\OLMESARTAN MEDOXOMIL [Concomitant]
     Active Substance: HYDROCHLOROTHIAZIDE\OLMESARTAN MEDOXOMIL
     Indication: Hypertension
  17. DOXAZOSIN [Concomitant]
     Active Substance: DOXAZOSIN MESYLATE
     Indication: Hypertensive heart disease
     Dosage: 4 MILLIGRAM, QD
  18. OMEPRAZOLE [Concomitant]
     Active Substance: OMEPRAZOLE
     Indication: Product used for unknown indication
     Dosage: 20 MILLIGRAM, QD
  19. ADALIMUMAB [Concomitant]
     Active Substance: ADALIMUMAB
     Indication: Product used for unknown indication
  20. ADALIMUMAB [Concomitant]
     Active Substance: ADALIMUMAB
     Dosage: 40 MILLIGRAM, QW (EVERY 7 DAYS)
  21. TRIAMCINOLONE [Concomitant]
     Active Substance: TRIAMCINOLONE
     Indication: Pyoderma gangrenosum
  22. INFLIXIMAB [Concomitant]
     Active Substance: INFLIXIMAB
     Indication: Pyoderma gangrenosum

REACTIONS (4)
  - Rhabdomyolysis [Unknown]
  - Acute kidney injury [Unknown]
  - Myopathy [Recovered/Resolved]
  - Drug interaction [Unknown]
